FAERS Safety Report 12871086 (Version 2)
Quarter: 2016Q4

REPORT INFORMATION
  Report Type: Spontaneous
  Country: US (occurrence: US)
  Receive Date: 20161021
  Receipt Date: 20161118
  Transmission Date: 20170207
  Serious: No
  Sender: FDA-Public Use
  Company Number: US-009507513-1610USA009793

PATIENT
  Age: 48 Year
  Sex: Male

DRUGS (4)
  1. DEXAMETHASONE. [Suspect]
     Active Substance: DEXAMETHASONE
     Dosage: 50 MG INTRAVENOUS ONCE, FOLLOWED BY 10 MG EVERY 6 H
     Route: 042
  2. BUPIVACAINE. [Concomitant]
     Active Substance: BUPIVACAINE
     Indication: PAIN MANAGEMENT
     Dosage: 4 ML, ONCE
     Route: 008
  3. DEXAMETHASONE. [Suspect]
     Active Substance: DEXAMETHASONE
     Indication: DURAL ARTERIOVENOUS FISTULA
     Dosage: 50 MG INTRAVENOUS ONCE, FOLLOWED BY 10 MG EVERY 6 H
     Route: 042
  4. CELESTONE SOLUSPAN [Concomitant]
     Active Substance: BETAMETHASONE ACETATE\BETAMETHASONE SODIUM PHOSPHATE
     Indication: PAIN MANAGEMENT
     Dosage: 12 MG (2ML), ONCE
     Route: 008

REACTIONS (1)
  - Drug ineffective [Unknown]
